FAERS Safety Report 4613632-2 (Version None)
Quarter: 2005Q1

REPORT INFORMATION
  Report Type: 
  Country: None (occurrence: None)
  Receive Date: 20050315
  Receipt Date: 20030318
  Transmission Date: 20050727
  Serious: No
  Sender: FDA-Public Use
  Company Number: 5003

PATIENT
  Age: 85 Year
  Sex: Female

DRUGS (10)
  1. MIDAZOLAM [Suspect]
     Indication: PREMEDICATION
     Dosage: 3 MG ONCE
     Dates: start: 20010914
  2. FENTANYL [Suspect]
     Indication: PREMEDICATION
     Dosage: 50 MG ONCE
     Dates: start: 20010914
  3. PROPOFOL [Suspect]
     Indication: PREMEDICATION
     Dosage: 30 MG ONCE
     Dates: start: 20010914
  4. CEFTRIAXONE [Suspect]
     Indication: PREMEDICATION
     Dosage: 1 G ONCE
     Dates: start: 20010914
  5. HYOSCINE HBR HYT [Suspect]
     Indication: PREMEDICATION
     Dosage: 20 MG ONCE
     Dates: start: 20010914
  6. LANSOPRAZOLE [Concomitant]
  7. FRUSEMIDE [Concomitant]
  8. DIGOXIN [Concomitant]
  9. RISPERIDONE [Concomitant]
  10. PRAVASTATIN [Concomitant]

REACTIONS (5)
  - HYPOTENSION [None]
  - HYPOTHERMIA [None]
  - HYPOXIA [None]
  - RESPIRATORY ARREST [None]
  - TACHYCARDIA [None]
